FAERS Safety Report 7940453-5 (Version None)
Quarter: 2011Q4

REPORT INFORMATION
  Report Type: 
  Country: None (occurrence: None)
  Receive Date: 20111128
  Receipt Date: 20111122
  Transmission Date: 20120403
  Serious: No
  Sender: FDA-Public Use
  Company Number: US-PFIZER INC-2011286037

PATIENT
  Age: 10 Year
  Sex: Female

DRUGS (1)
  1. JUNIOR STRENGTH ADVIL [Suspect]
     Dosage: 100 MG, UNK

REACTIONS (2)
  - URTICARIA [None]
  - PRURITUS [None]
